FAERS Safety Report 10241759 (Version 1)
Quarter: 2014Q2

REPORT INFORMATION
  Report Type: Spontaneous
  Country: US (occurrence: US)
  Receive Date: 20140617
  Receipt Date: 20140617
  Transmission Date: 20141212
  Serious: Yes (Other)
  Sender: FDA-Public Use
  Company Number: US-ACTELION-A-US2014-100300

PATIENT
  Age: 64 Year
  Sex: Female

DRUGS (2)
  1. VELETRI [Suspect]
     Indication: PRODUCT USED FOR UNKNOWN INDICATION
     Dosage: UNK
     Route: 042
     Dates: start: 20131204
  2. ADCIRCA [Concomitant]

REACTIONS (4)
  - Macular degeneration [Unknown]
  - Eye haemorrhage [Unknown]
  - Diabetes mellitus [Unknown]
  - Glaucoma [Unknown]
